FAERS Safety Report 4402177-0 (Version None)
Quarter: 2004Q3

REPORT INFORMATION
  Report Type: 
  Country: None (occurrence: None)
  Receive Date: 20040716
  Receipt Date: 20040706
  Transmission Date: 20050211
  Serious: No
  Sender: FDA-Public Use
  Company Number: 2004-118310-NL

PATIENT
  Age: 48 Year
  Sex: Female

DRUGS (1)
  1. NUVARING [Suspect]
     Indication: CONTRACEPTION
     Dosage: DF    VAGINAL
     Route: 067
     Dates: start: 20040120, end: 20040208

REACTIONS (5)
  - DYSPNOEA [None]
  - FLATULENCE [None]
  - MENORRHAGIA [None]
  - MENSTRUATION IRREGULAR [None]
  - PRURITUS [None]
